FAERS Safety Report 9285757 (Version 1)
Quarter: 2013Q2

REPORT INFORMATION
  Report Type: Spontaneous
  Country: US (occurrence: None)
  Receive Date: 20130510
  Receipt Date: 20130510
  Transmission Date: 20140414
  Serious: No
  Sender: FDA-Public Use
  Company Number: None

PATIENT
  Sex: Female

DRUGS (1)
  1. ENBREL SURECLICK [Suspect]
     Route: 058

REACTIONS (3)
  - Drug ineffective [None]
  - Injection site pain [None]
  - Rheumatoid arthritis [None]
